FAERS Safety Report 6320085-5 (Version None)
Quarter: 2009Q3

REPORT INFORMATION
  Report Type: 
  Country: None (occurrence: None)
  Receive Date: 20090822
  Receipt Date: 20081016
  Transmission Date: 20100115
  Serious: No
  Sender: FDA-Public Use
  Company Number: US-ABBOTT-08P-163-0482362-00

PATIENT
  Sex: Male

DRUGS (6)
  1. NIASPAN [Suspect]
     Indication: HIGH DENSITY LIPOPROTEIN DECREASED
     Dosage: 500MG AT HS
     Route: 048
     Dates: start: 20081002
  2. NIASPAN [Suspect]
     Indication: BLOOD TRIGLYCERIDES INCREASED
  3. IBUPROFEN [Concomitant]
     Indication: DRUG USE FOR UNKNOWN INDICATION
  4. UNKNOWN BLOOD PRESSURE PILLS [Concomitant]
     Indication: BLOOD PRESSURE
  5. UNKNOWN GOUT PILL [Concomitant]
     Indication: GOUT
  6. SERTRALINE [Concomitant]
     Indication: ANTIDEPRESSANT THERAPY

REACTIONS (3)
  - PARAESTHESIA [None]
  - PRURITUS [None]
  - URTICARIA [None]
